FAERS Safety Report 5020471-X (Version None)
Quarter: 2006Q2

REPORT INFORMATION
  Report Type: 
  Country: None (occurrence: None)
  Receive Date: 20060531
  Receipt Date: 20060518
  Transmission Date: 20061013
  Serious: Yes (Death)
  Sender: FDA-Public Use
  Company Number: WAES 0605USA03915

PATIENT
  Age: 38 Year
  Sex: Male

DRUGS (7)
  1. DECADRON [Suspect]
     Indication: T-CELL LYMPHOMA
     Dosage: PO
     Route: 048
  2. ETOPOSIDE [Suspect]
     Dosage: 200 MG/M[2]/BID IV
     Route: 042
  3. IFOSFAMIDE [Suspect]
     Dosage: UNK
     Route: 065
  4. CISPLATIN [Suspect]
     Dosage: UNK
     Route: 065
  5. CARMUSTINE [Suspect]
     Dosage: 300 MG/M[2]/1X IV
     Route: 042
  6. CYTARABINE [Suspect]
     Dosage: 200 MG/M[2]/BID IV
     Route: 042
  7. MELPHALAN [Suspect]
     Dosage: 140 MG/M[2]/1X IV
     Route: 042

REACTIONS (1)
  - DEATH [None]
